FAERS Safety Report 18692748 (Version 1)
Quarter: 2021Q1

REPORT INFORMATION
  Report Type: Spontaneous
  Country: ES (occurrence: ES)
  Receive Date: 20210104
  Receipt Date: 20210104
  Transmission Date: 20210419
  Serious: Yes (Other)
  Sender: FDA-Public Use
  Company Number: ES-CELLTRION INC.-2020ES034699

PATIENT

DRUGS (1)
  1. INFLIXIMAB (UNKNOWN) [Suspect]
     Active Substance: INFLIXIMAB
     Indication: OSTEOMYELITIS CHRONIC
     Dosage: UNK
     Route: 065

REACTIONS (3)
  - Staphylococcal osteomyelitis [Unknown]
  - Off label use [Unknown]
  - Drug effective for unapproved indication [Unknown]
